FAERS Safety Report 9258767 (Version 2)
Quarter: 2013Q2

REPORT INFORMATION
  Report Type: Spontaneous
  Country: FR (occurrence: FR)
  Receive Date: 20130426
  Receipt Date: 20130515
  Transmission Date: 20140414
  Serious: Yes (Hospitalization)
  Sender: FDA-Public Use
  Company Number: FR-BRISTOL-MYERS SQUIBB COMPANY-18802710

PATIENT
  Age: 66 Year
  Sex: Male

DRUGS (6)
  1. ELISOR TABS 20 MG [Suspect]
     Route: 048
     Dates: end: 20130301
  2. METFORMIN HCL [Suspect]
     Route: 048
     Dates: end: 20130301
  3. LEVEMIR [Concomitant]
     Route: 058
  4. VICTOZA [Concomitant]
  5. COTAREG [Concomitant]
  6. ROCEPHINE [Concomitant]
     Dates: start: 20130221, end: 20130226

REACTIONS (26)
  - Pyrexia [Recovered/Resolved]
  - Myalgia [Recovered/Resolved]
  - Aspartate aminotransferase increased [Recovered/Resolved]
  - Blood alkaline phosphatase increased [Recovered/Resolved]
  - White blood cell count increased [Recovered/Resolved]
  - Pain in extremity [Not Recovered/Not Resolved]
  - Inflammation [None]
  - Weight decreased [None]
  - Bacteraemia [None]
  - Drug ineffective [None]
  - Heart rate increased [None]
  - Hepatocellular injury [None]
  - Hyperlactacidaemia [None]
  - Cholestasis [None]
  - Serum ferritin increased [None]
  - Vitamin D deficiency [None]
  - Glycosylated haemoglobin increased [None]
  - Complement factor increased [None]
  - Abdominal hernia [None]
  - Hepatic steatosis [None]
  - Pancreatic steatosis [None]
  - Portal vein dilatation [None]
  - Peripheral sensorimotor neuropathy [None]
  - Juvenile idiopathic arthritis [None]
  - Haemoglobin decreased [None]
  - Platelet count increased [None]
